FAERS Safety Report 8209397-8 (Version None)
Quarter: 2012Q1

REPORT INFORMATION
  Report Type: 
  Country: None (occurrence: None)
  Receive Date: 20120314
  Receipt Date: 20120308
  Transmission Date: 20120608
  Serious: Yes (Hospitalization)
  Sender: FDA-Public Use
  Company Number: US-BAYER-201029648NA

PATIENT
  Age: 32 Year
  Sex: Female
  Weight: 100 kg

DRUGS (5)
  1. ATIVAN [Concomitant]
     Indication: PANIC ATTACK
  2. YAZ [Suspect]
     Dosage: UNK
     Route: 048
     Dates: start: 20071101, end: 20080812
  3. MARIJUANA [Concomitant]
  4. IBUPROFEN (ADVIL) [Concomitant]
     Indication: PAIN
     Dosage: 200 MG, PRN
  5. MOTRIN [Concomitant]
     Indication: PAIN
     Dosage: 200 MG, PRN

REACTIONS (3)
  - PAIN [None]
  - PULMONARY EMBOLISM [None]
  - EMOTIONAL DISTRESS [None]
